FAERS Safety Report 7150778-1 (Version None)
Quarter: 2010Q4

REPORT INFORMATION
  Report Type: 
  Country: None (occurrence: None)
  Receive Date: 20101210
  Receipt Date: 20101202
  Transmission Date: 20110411
  Serious: Yes (Hospitalization)
  Sender: FDA-Public Use
  Company Number: CA-JNJFOC-20101202895

PATIENT
  Sex: Female
  Weight: 74.1 kg

DRUGS (4)
  1. REMICADE [Suspect]
     Indication: RHEUMATOID ARTHRITIS
     Route: 042
  2. REMICADE [Suspect]
     Route: 042
  3. IMURAN [Concomitant]
  4. TYLENOL (CAPLET) [Concomitant]
     Indication: ARTHRITIS

REACTIONS (1)
  - HIP SURGERY [None]
